FAERS Safety Report 7605835-X (Version None)
Quarter: 2011Q3

REPORT INFORMATION
  Report Type: 
  Country: None (occurrence: None)
  Receive Date: 20110712
  Receipt Date: 20110712
  Transmission Date: 20111222
  Serious: No
  Sender: FDA-Public Use
  Company Number: None

PATIENT
  Age: 37 Year
  Sex: Male
  Weight: 78.0187 kg

DRUGS (2)
  1. PROPECIA [Suspect]
     Indication: ALOPECIA
     Dosage: 1MG DAILY
     Dates: start: 19980619, end: 20020910
  2. PROPECIA [Suspect]
     Indication: ALOPECIA
     Dosage: 1MG DAILY
     Dates: start: 20090828, end: 20090921

REACTIONS (8)
  - GENITAL HYPOAESTHESIA [None]
  - PENILE SIZE REDUCED [None]
  - LIBIDO DECREASED [None]
  - ERECTILE DYSFUNCTION [None]
  - ANXIETY [None]
  - PROSTATIC PAIN [None]
  - COGNITIVE DISORDER [None]
  - DEPRESSION [None]
